FAERS Safety Report 20009047 (Version 1)
Quarter: 2021Q4

REPORT INFORMATION
  Report Type: Spontaneous
  Country: IT (occurrence: IT)
  Receive Date: 20211028
  Receipt Date: 20211028
  Transmission Date: 20220303
  Serious: Yes (Other)
  Sender: FDA-Public Use
  Company Number: IT-SAMSUNG BIOEPIS-SB-2021-25155

PATIENT
  Age: 8 Year
  Sex: Male

DRUGS (2)
  1. ADALIMUMAB [Suspect]
     Active Substance: ADALIMUMAB
     Indication: Crohn^s disease
     Dosage: UNKNOWN
     Route: 065
  2. CARBOHYDRATES\FATTY ACIDS\MINERALS\PROTEIN\VITAMINS [Suspect]
     Active Substance: CARBOHYDRATES\FATTY ACIDS\MINERALS\PROTEIN\VITAMINS
     Indication: Crohn^s disease
     Dosage: UNKNOWN, PARTIAL ENTERAL NUTRITION (PEN)
     Route: 065

REACTIONS (6)
  - Crohn^s disease [Recovered/Resolved]
  - Anaemia [Unknown]
  - Anal fistula [Recovered/Resolved]
  - Drug tolerance [Unknown]
  - Therapeutic product effect decreased [Unknown]
  - Nutritional condition abnormal [Recovered/Resolved]
